FAERS Safety Report 16264435 (Version 10)
Quarter: 2020Q1

REPORT INFORMATION
  Report Type: Spontaneous
  Country: US (occurrence: US)
  Receive Date: 20190502
  Receipt Date: 20200129
  Transmission Date: 20200409
  Serious: Yes (Hospitalization)
  Sender: FDA-Public Use
  Company Number: US-PFIZER INC-2019091784

PATIENT
  Age: 29 Year
  Sex: Male
  Weight: 82.55 kg

DRUGS (15)
  1. DILANTIN [Suspect]
     Active Substance: PHENYTOIN
     Indication: SEIZURE
     Dosage: 300 MG, DAILY [TAKES 3 100MG AND 2 30MG CAPSULES EVERY NIGHT]
     Route: 048
     Dates: start: 2014
  2. DILANTIN [Suspect]
     Active Substance: PHENYTOIN
     Dosage: 300 MG, DAILY (HE TAKES 3 100 MILLIGRAMS; THREE CAPSULE DAILY)
     Route: 048
  3. DILANTIN [Suspect]
     Active Substance: PHENYTOIN
     Dosage: 360 MG, UNK (HE DIDN^T GET 100 ONLY GOT 30; GONNA TAKE 12 PILLS)
  4. DILANTIN [Suspect]
     Active Substance: PHENYTOIN
     Dosage: 400 MG, DAILY
  5. ATENOLOL. [Concomitant]
     Active Substance: ATENOLOL
     Indication: MIGRAINE
     Dosage: 25 MG, 2X/DAY
     Route: 048
  6. DILANTIN [Suspect]
     Active Substance: PHENYTOIN
     Indication: EPILEPSY
     Dosage: 60 MG, DAILY [TAKES 3 100MG AND 2 30MG CAPSULES EVERY NIGHT]
     Route: 048
     Dates: start: 2014
  7. DILANTIN [Suspect]
     Active Substance: PHENYTOIN
     Dosage: 360 MG, DAILY (TAKE 3, 100MG CAPSULES AND 2, 30MG CAPSULES)
  8. DILANTIN [Suspect]
     Active Substance: PHENYTOIN
     Dosage: 390MG, (13 DF (13 OF 30MG))
  9. DILANTIN [Suspect]
     Active Substance: PHENYTOIN
     Dosage: 60 MG, DAILY (2 30 MILLIGRAMS A DAY; TWO CAPSULE DAILY)
  10. DILANTIN [Suspect]
     Active Substance: PHENYTOIN
     Dosage: 300 MG, 1X/DAY (THREE CAPSULES EVERY NIGHT AT BEDTIME)
     Route: 048
  11. ATENOLOL. [Concomitant]
     Active Substance: ATENOLOL
     Indication: AGITATION
  12. DILANTIN [Suspect]
     Active Substance: PHENYTOIN
     Dosage: 30 MG, 1X/DAY (AT NIGHT)
     Route: 048
  13. DILANTIN [Suspect]
     Active Substance: PHENYTOIN
     Dosage: 360 MG, 1X/DAY
  14. ZOLOFT [Concomitant]
     Active Substance: SERTRALINE HYDROCHLORIDE
     Indication: SEIZURE PROPHYLAXIS
     Dosage: 100 MG, 2X/DAY [100 MG TABLET, 1 IN THE MORNING AND 1 AT NIGHT BY MOUTH]
     Route: 048
  15. SERTRALINE HYDROCHLORIDE. [Concomitant]
     Active Substance: SERTRALINE HYDROCHLORIDE
     Indication: AFFECTIVE DISORDER
     Dosage: 100 MG, DAILY
     Route: 048

REACTIONS (6)
  - Anger [Unknown]
  - Drug ineffective [Unknown]
  - Incorrect dose administered [Unknown]
  - Product prescribing error [Unknown]
  - Toxicity to various agents [Recovered/Resolved]
  - Product dispensing error [Unknown]
